FAERS Safety Report 20254914 (Version 1)
Quarter: 2021Q4

REPORT INFORMATION
  Report Type: Spontaneous
  Country: DE (occurrence: DE)
  Receive Date: 20211230
  Receipt Date: 20211230
  Transmission Date: 20220303
  Serious: Yes (Hospitalization, Other)
  Sender: FDA-Public Use
  Company Number: DE-ADRED-07489-01

PATIENT
  Age: 77 Year
  Sex: Female

DRUGS (12)
  1. FLECAINIDE [Suspect]
     Active Substance: FLECAINIDE
     Dosage: 200 MILLIGRAM DAILY;  1-0-1-0
     Route: 048
  2. METOPROLOL [Suspect]
     Active Substance: METOPROLOL
     Dosage: 47.5 MG, 1-0-0.5-0,
     Route: 048
  3. LEVOTHYROXINE SODIUM [Concomitant]
     Active Substance: LEVOTHYROXINE SODIUM
     Dosage: 75 MICROGRAM DAILY; 1-0-0-0
     Route: 048
  4. Kalium/Magnesium [Concomitant]
     Dosage: 4 DOSAGE FORMS DAILY; 80|25 MG, 2-0-2-0
     Route: 048
  5. SODIUM PICOSULFATE [Concomitant]
     Active Substance: SODIUM PICOSULFATE
     Dosage: REQUIREMENT
     Route: 048
  6. AMLODIPINE BESYLATE [Concomitant]
     Active Substance: AMLODIPINE BESYLATE
     Dosage: 5 MILLIGRAM DAILY; 1-0-0-0
     Route: 048
  7. IBUPROFEN [Concomitant]
     Active Substance: IBUPROFEN
     Dosage: 400 MG, AS NEEDED
     Route: 048
  8. PREGABALIN [Concomitant]
     Active Substance: PREGABALIN
     Dosage: 300 MILLIGRAM DAILY; 1-0-1-0
     Route: 048
  9. XARELTO [Concomitant]
     Active Substance: RIVAROXABAN
     Dosage: 15 MILLIGRAM DAILY;  1-0-0-0
     Route: 048
  10. ROSUVASTATIN [Concomitant]
     Active Substance: ROSUVASTATIN
     Dosage: 5 MG, 1X
     Route: 048
  11. LOSARTAN [Concomitant]
     Active Substance: LOSARTAN
     Dosage: 100 MILLIGRAM DAILY; 1-0-1-0
     Route: 048
  12. TORSEMIDE [Concomitant]
     Active Substance: TORSEMIDE
     Dosage: .5 DOSAGE FORMS DAILY; 10 MG, 0.5-0-0-0
     Route: 048

REACTIONS (4)
  - Feeling abnormal [Unknown]
  - Palpitations [Unknown]
  - Dizziness [Unknown]
  - Atrial fibrillation [Unknown]
